FAERS Safety Report 9653255 (Version 1)
Quarter: 2013Q4

REPORT INFORMATION
  Report Type: Spontaneous
  Country: US (occurrence: None)
  Receive Date: 20131028
  Receipt Date: 20131028
  Transmission Date: 20140711
  Serious: Yes (Disabling)
  Sender: FDA-Public Use
  Company Number: None

PATIENT
  Age: 73 Year
  Sex: Male
  Weight: 83.46 kg

DRUGS (1)
  1. BESIVANCE [Suspect]
     Indication: CATARACT OPERATION
     Dosage: 1 DROP TWICE DAILY
     Route: 047
     Dates: start: 20130807, end: 20130913

REACTIONS (3)
  - Vision blurred [None]
  - Lenticular opacities [None]
  - Post procedural complication [None]
